FAERS Safety Report 8566361-7 (Version None)
Quarter: 2012Q3

REPORT INFORMATION
  Report Type: 
  Country: None (occurrence: None)
  Receive Date: 20120803
  Receipt Date: 20111025
  Transmission Date: 20120928
  Serious: No
  Sender: FDA-Public Use
  Company Number: US-ABBOTT-11P-163-0868880-00

PATIENT
  Sex: Male
  Weight: 122.58 kg

DRUGS (6)
  1. SIMVASTATIN [Concomitant]
     Indication: BLOOD CHOLESTEROL INCREASED
  2. METFORMIN HYDROCHLORIDE [Concomitant]
     Indication: DIABETES MELLITUS
  3. LEXAPRO [Concomitant]
     Indication: DEPRESSION
  4. UNKNOWN MEDICATION [Concomitant]
     Indication: THYROID DISORDER
  5. NIASPAN [Suspect]
     Indication: HIGH DENSITY LIPOPROTEIN DECREASED
     Dosage: AT BEDTIME
     Route: 048
     Dates: start: 20060101
  6. PREVACID [Concomitant]
     Indication: GASTROOESOPHAGEAL REFLUX DISEASE

REACTIONS (2)
  - BLOOD GLUCOSE INCREASED [None]
  - DIABETES MELLITUS [None]
